FAERS Safety Report 7331337-4 (Version None)
Quarter: 2011Q1

REPORT INFORMATION
  Report Type: 
  Country: None (occurrence: None)
  Receive Date: 20110228
  Receipt Date: 20110228
  Transmission Date: 20110831
  Serious: No
  Sender: FDA-Public Use
  Company Number: None

PATIENT
  Sex: Female
  Weight: 61 kg

DRUGS (1)
  1. VIBRA-TABS [Suspect]
     Indication: BRONCHITIS
     Dosage: 7 YRS AGO

REACTIONS (3)
  - DYSPNOEA [None]
  - DIARRHOEA [None]
  - ABDOMINAL PAIN UPPER [None]
